FAERS Safety Report 18947757 (Version 1)
Quarter: 2021Q1

REPORT INFORMATION
  Report Type: Spontaneous
  Country: FR (occurrence: FR)
  Receive Date: 20210226
  Receipt Date: 20210226
  Transmission Date: 20210420
  Serious: Yes (Disabling)
  Sender: FDA-Public Use
  Company Number: FR-US-PROVELL PHARMACEUTICALS LLC-E2B_90082491

PATIENT
  Age: 75 Year
  Sex: Female
  Weight: 77 kg

DRUGS (11)
  1. DOLIPRANE [Suspect]
     Active Substance: ACETAMINOPHEN
     Indication: PAIN
     Route: 048
  2. ACLASTA [Suspect]
     Active Substance: ZOLEDRONIC ACID
     Indication: OSTEOPOROSIS
     Dates: start: 201403, end: 201503
  3. GABAPENTINE [Suspect]
     Active Substance: GABAPENTIN
     Dosage: DOSE REDUCED
  4. URBANYL [Suspect]
     Active Substance: CLOBAZAM
     Indication: PAIN
     Route: 048
     Dates: start: 20200610
  5. DICODIN [Suspect]
     Active Substance: DIHYDROCODEINE
     Indication: PAIN
     Route: 048
     Dates: start: 20200610
  6. DICODIN [Suspect]
     Active Substance: DIHYDROCODEINE
     Dosage: DOSE REDUCED
  7. URBANYL [Suspect]
     Active Substance: CLOBAZAM
     Dosage: DOSE REDUCED.
  8. LEVOTHYROX 125 [Suspect]
     Active Substance: LEVOTHYROXINE
     Indication: HYPOTHYROIDISM
     Route: 048
     Dates: start: 2013
  9. GABAPENTINE [Suspect]
     Active Substance: GABAPENTIN
     Indication: PAIN
     Route: 048
     Dates: start: 201703
  10. UVEDOSE [Suspect]
     Active Substance: CHOLECALCIFEROL
     Indication: VITAMIN SUPPLEMENTATION
     Route: 048
     Dates: start: 20200611
  11. VENLAFAXINE [Suspect]
     Active Substance: VENLAFAXINE HYDROCHLORIDE
     Indication: PAIN
     Route: 048

REACTIONS (6)
  - Periodontitis [Not Recovered/Not Resolved]
  - Gingival recession [Recovered/Resolved with Sequelae]
  - Constipation [Recovering/Resolving]
  - Dry mouth [Not Recovered/Not Resolved]
  - Dry eye [Not Recovered/Not Resolved]
  - Tooth fracture [Recovered/Resolved with Sequelae]

NARRATIVE: CASE EVENT DATE: 202007
